FAERS Safety Report 14985409 (Version 1)
Quarter: 2018Q2

REPORT INFORMATION
  Report Type: Spontaneous
  Country: DE (occurrence: DE)
  Receive Date: 20180607
  Receipt Date: 20180607
  Transmission Date: 20180711
  Serious: Yes (Hospitalization)
  Sender: FDA-Public Use
  Company Number: DE-TEVA-2018-DE-902878

PATIENT
  Age: 25 Year
  Sex: Female

DRUGS (2)
  1. TRAMADOL. [Suspect]
     Active Substance: TRAMADOL
     Dosage: NK
     Route: 065
  2. ORTOTON (METHOCARBAMOL) [Interacting]
     Active Substance: METHOCARBAMOL
     Dosage: 1500 MILLIGRAM DAILY; 1-1-0-0
     Route: 065

REACTIONS (5)
  - Dizziness [Unknown]
  - Drug prescribing error [Unknown]
  - Pallor [Unknown]
  - Presyncope [Unknown]
  - Labelled drug-drug interaction medication error [Unknown]

NARRATIVE: CASE EVENT DATE: 20151010
